FAERS Safety Report 8167917-6 (Version None)
Quarter: 2012Q1

REPORT INFORMATION
  Report Type: 
  Country: None (occurrence: None)
  Receive Date: 20120227
  Receipt Date: 20120221
  Transmission Date: 20120608
  Serious: Yes (Hospitalization)
  Sender: FDA-Public Use
  Company Number: US-GLAXOSMITHKLINE-A0903052A

PATIENT
  Age: 85 Year
  Sex: Female
  Weight: 69.1 kg

DRUGS (6)
  1. COZAAR [Concomitant]
  2. AVANDIA [Suspect]
     Indication: DIABETES MELLITUS
     Dosage: 4MG PER DAY
     Route: 048
     Dates: start: 20060424, end: 20100419
  3. FLEXERIL [Concomitant]
  4. SIMVASTATIN [Concomitant]
  5. LORAZEPAM [Concomitant]
  6. GLIMEPIRIDE [Concomitant]

REACTIONS (7)
  - ACUTE CORONARY SYNDROME [None]
  - SPINAL COMPRESSION FRACTURE [None]
  - ACUTE MYOCARDIAL INFARCTION [None]
  - CORONARY ARTERY DISEASE [None]
  - ACUTE PULMONARY OEDEMA [None]
  - ISCHAEMIC CARDIOMYOPATHY [None]
  - CARDIAC FAILURE CONGESTIVE [None]
